FAERS Safety Report 14813624 (Version 1)
Quarter: 2018Q2

REPORT INFORMATION
  Report Type: Spontaneous
  Country: FR (occurrence: FR)
  Receive Date: 20180426
  Receipt Date: 20180426
  Transmission Date: 20180711
  Serious: Yes (Hospitalization)
  Sender: FDA-Public Use
  Company Number: FR-BIOGEN-2018BI00562552

PATIENT
  Age: 57 Year
  Sex: Female
  Weight: 69 kg

DRUGS (1)
  1. TECFIDERA [Suspect]
     Active Substance: DIMETHYL FUMARATE
     Indication: MULTIPLE SCLEROSIS
     Dosage: 1-0-1
     Route: 048
     Dates: start: 20140924, end: 20180211

REACTIONS (2)
  - Jaundice [Not Recovered/Not Resolved]
  - Cholelithiasis [Not Recovered/Not Resolved]

NARRATIVE: CASE EVENT DATE: 20180211
